FAERS Safety Report 12692840 (Version 1)
Quarter: 2016Q3

REPORT INFORMATION
  Report Type: Spontaneous
  Country: CA (occurrence: CA)
  Receive Date: 20160829
  Receipt Date: 20160829
  Transmission Date: 20161109
  Serious: Yes (Other)
  Sender: FDA-Public Use
  Company Number: CA-SA-2016SA124868

PATIENT
  Age: 55 Year
  Sex: Female
  Weight: 57 kg

DRUGS (3)
  1. TYLENOL WITH CODEINE [Concomitant]
     Active Substance: ACETAMINOPHEN\CODEINE PHOSPHATE
     Indication: PRODUCT USED FOR UNKNOWN INDICATION
     Route: 065
  2. HUMAN RABIES IMMUNOGLOBULIN [Suspect]
     Active Substance: RABIES IMMUNE GLOBULIN (HUMAN)
     Indication: IMMUNISATION
     Dosage: SERIES OF INJECTIONS
     Route: 065
     Dates: start: 20130607, end: 20130625
  3. IMOVAX RABIES [Suspect]
     Active Substance: RABIES VIRUS STRAIN PM-1503-3M ANTIGEN (PROPIOLACTONE INACTIVATED)
     Indication: IMMUNISATION
     Dosage: POWDER FOR SOLUTION
     Route: 030

REACTIONS (20)
  - Hyperhidrosis [Recovered/Resolved]
  - Lymphadenopathy [Recovered/Resolved]
  - Injection site pain [Recovered/Resolved]
  - Pyrexia [Recovered/Resolved]
  - Nausea [Recovered/Resolved]
  - Irritability [Recovered/Resolved]
  - Chills [Recovered/Resolved]
  - Injection site pruritus [Recovered/Resolved]
  - Rash [Recovered/Resolved]
  - Injection site induration [Recovered/Resolved]
  - Asthenia [Recovered/Resolved]
  - Dizziness [Recovered/Resolved]
  - Confusional state [Recovered/Resolved]
  - Musculoskeletal stiffness [Recovered/Resolved]
  - Abdominal pain [Recovered/Resolved]
  - Injection site bruising [Recovered/Resolved]
  - Diarrhoea [Recovered/Resolved]
  - Headache [Recovered/Resolved]
  - Myalgia [Recovered/Resolved]
  - Injection site erythema [Recovered/Resolved]

NARRATIVE: CASE EVENT DATE: 20130607
